APPROVED DRUG PRODUCT: LIBRAX
Active Ingredient: CHLORDIAZEPOXIDE HYDROCHLORIDE; CLIDINIUM BROMIDE
Strength: 5MG;2.5MG
Dosage Form/Route: CAPSULE;ORAL
Application: N012750 | Product #001 | TE Code: AB
Applicant: BAUSCH HEALTH US LLC
Approved: Approved Prior to Jan 1, 1982 | RLD: Yes | RS: Yes | Type: RX